FAERS Safety Report 10445352 (Version 1)
Quarter: 2014Q3

REPORT INFORMATION
  Report Type: Spontaneous
  Country: US (occurrence: US)
  Receive Date: 20140910
  Receipt Date: 20140910
  Transmission Date: 20150326
  Serious: Yes (Other)
  Sender: FDA-Public Use
  Company Number: US-GLAXOSMITHKLINE-A1088506A

PATIENT
  Age: 53 Year
  Sex: Female

DRUGS (1)
  1. VENTOLIN HFA [Suspect]
     Active Substance: ALBUTEROL SULFATE
     Indication: PRODUCT USED FOR UNKNOWN INDICATION
     Route: 065

REACTIONS (13)
  - Emphysema [Unknown]
  - Back pain [Unknown]
  - Anxiety [Unknown]
  - Peripheral swelling [Unknown]
  - Pain in extremity [Unknown]
  - Dyspepsia [Unknown]
  - Hearing impaired [Unknown]
  - Hand fracture [Unknown]
  - Gastric ulcer [Unknown]
  - Hernia [Unknown]
  - Thyroid disorder [Unknown]
  - Osteoporosis [Unknown]
  - Insomnia [Unknown]
